FAERS Safety Report 8284043-6 (Version None)
Quarter: 2012Q2

REPORT INFORMATION
  Report Type: 
  Country: None (occurrence: None)
  Receive Date: 20120413
  Receipt Date: 20110930
  Transmission Date: 20120825
  Serious: No
  Sender: FDA-Public Use
  Company Number: US-ASTRAZENECA-2011SE59517

PATIENT
  Age: 61 Year
  Sex: Female

DRUGS (4)
  1. NEXIUM [Suspect]
     Route: 048
  2. OTC PRODUCTS [Concomitant]
  3. GENERIC PRODUCTS [Concomitant]
  4. ZANTAC [Concomitant]

REACTIONS (5)
  - PAIN [None]
  - APHAGIA [None]
  - ROTATOR CUFF SYNDROME [None]
  - MALAISE [None]
  - DRUG DOSE OMISSION [None]
